FAERS Safety Report 9186714 (Version 2)
Quarter: 2013Q2

REPORT INFORMATION
  Report Type: Spontaneous
  Country: JP (occurrence: JP)
  Receive Date: 20130325
  Receipt Date: 20130528
  Transmission Date: 20140414
  Serious: Yes (Hospitalization)
  Sender: FDA-Public Use
  Company Number: JP-VERTEX PHARMACEUTICALS INC.-2013-003969

PATIENT
  Age: 57 Year
  Sex: Female

DRUGS (5)
  1. TELAVIC [Suspect]
     Indication: CHRONIC HEPATITIS C
     Dosage: 1500 MG, QD
     Route: 048
     Dates: start: 20130214
  2. REBETOL [Suspect]
     Indication: CHRONIC HEPATITIS C
     Dosage: 800 MG, QD
     Route: 048
     Dates: start: 20130214, end: 20130306
  3. REBETOL [Suspect]
     Dosage: 400 MG, QD
     Route: 048
     Dates: start: 20130307
  4. PEGINTRON [Suspect]
     Indication: CHRONIC HEPATITIS C
     Dosage: 80 ?G, QW
     Route: 058
     Dates: start: 20130214, end: 20130307
  5. URSO [Concomitant]
     Dosage: 600 MG, QD
     Route: 048

REACTIONS (4)
  - Toxic skin eruption [Recovered/Resolved]
  - Blood uric acid increased [Recovered/Resolved]
  - Erythema [Recovered/Resolved]
  - Haemoglobin decreased [Recovered/Resolved]
